FAERS Safety Report 15667467 (Version 1)
Quarter: 2018Q4

REPORT INFORMATION
  Report Type: Spontaneous
  Country: US (occurrence: US)
  Receive Date: 20181128
  Receipt Date: 20181128
  Transmission Date: 20190205
  Serious: No
  Sender: FDA-Public Use
  Company Number: US-PFIZER INC-2018479140

PATIENT
  Age: 41 Year
  Sex: Female
  Weight: 58.96 kg

DRUGS (4)
  1. DOCETAXEL. [Suspect]
     Active Substance: DOCETAXEL
     Indication: BREAST CANCER
     Dosage: UNK, CYCLIC (6 CYCLES, EVERY THREE WEEKS)
     Dates: start: 20140818, end: 20141201
  2. DOXIL [PEGYLATED LIPOSOMAL DOXORUBICIN HYDROCHLORIDE] [Concomitant]
     Dosage: UNK
  3. ADRIAMYCIN [DOXORUBICIN HYDROCHLORIDE] [Concomitant]
     Dosage: UNK
  4. NEOSAR [Concomitant]
     Active Substance: CYCLOPHOSPHAMIDE
     Dosage: UNK

REACTIONS (4)
  - Hair texture abnormal [Unknown]
  - Hair disorder [Unknown]
  - Madarosis [Unknown]
  - Alopecia [Unknown]

NARRATIVE: CASE EVENT DATE: 201506
